FAERS Safety Report 9786850 (Version 3)
Quarter: 2014Q1

REPORT INFORMATION
  Report Type: Spontaneous
  Country: US (occurrence: US)
  Receive Date: 20131227
  Receipt Date: 20140117
  Transmission Date: 20141002
  Serious: Yes (Congenital Anomaly)
  Sender: FDA-Public Use
  Company Number: US-009507513-1312USA011503

PATIENT
  Age: 0 Day
  Sex: Male
  Weight: 3.9 kg

DRUGS (7)
  1. ISENTRESS [Suspect]
     Indication: HEPATITIS C
     Dosage: 1 DF, BID
     Route: 064
     Dates: start: 20120601, end: 20131114
  2. TRUVADA [Suspect]
     Indication: HEPATITIS C
     Dosage: 1 DF, QD
     Route: 064
     Dates: start: 20120601, end: 20131114
  3. METHADONE HYDROCHLORIDE [Concomitant]
     Dosage: UNK
     Route: 064
     Dates: start: 2013, end: 20131114
  4. FOLIC ACID [Concomitant]
     Dosage: UNK
     Route: 064
     Dates: start: 2013, end: 20131114
  5. SUBOXONE [Concomitant]
     Dosage: UNK
     Route: 064
     Dates: start: 2013, end: 2013
  6. CELEXA [Concomitant]
     Dosage: UNK
     Route: 064
     Dates: start: 2013, end: 2013
  7. DAPSONE [Concomitant]
     Dosage: UNK
     Dates: start: 2013, end: 20131114

REACTIONS (3)
  - Cryptorchism [Unknown]
  - Talipes [Unknown]
  - Foetal exposure during pregnancy [Unknown]
